FAERS Safety Report 19990560 (Version 1)
Quarter: 2021Q4

REPORT INFORMATION
  Report Type: Report from Study
  Country: US (occurrence: US)
  Receive Date: 20211025
  Receipt Date: 20211025
  Transmission Date: 20220303
  Serious: No
  Sender: FDA-Public Use
  Company Number: US-IPSEN BIOPHARMACEUTICALS, INC.-2021-25691

PATIENT
  Age: 70 Year
  Sex: Male

DRUGS (1)
  1. SOMATULINE DEPOT [Suspect]
     Active Substance: LANREOTIDE ACETATE
     Indication: Metastatic carcinoid tumour
     Route: 058
     Dates: start: 2017

REACTIONS (2)
  - Dizziness [Recovering/Resolving]
  - Pulse abnormal [Recovering/Resolving]

NARRATIVE: CASE EVENT DATE: 20170101
